FAERS Safety Report 8914246 (Version 2)
Quarter: 2012Q4

REPORT INFORMATION
  Report Type: Report from Study
  Country: US (occurrence: US)
  Receive Date: 20121119
  Receipt Date: 20121130
  Transmission Date: 20130627
  Serious: Yes (Death, Other)
  Sender: FDA-Public Use
  Company Number: US-JNJFOC-20121016365

PATIENT
  Sex: Male

DRUGS (2)
  1. NUCYNTA ER [Suspect]
     Indication: PAIN
     Dosage: 2 times
     Route: 048
     Dates: start: 20120804
  2. UNKNOWN MEDICATION [Concomitant]
     Indication: MULTIPLE MYELOMA
     Route: 065

REACTIONS (3)
  - Death [Fatal]
  - Herpes zoster [Unknown]
  - Plasma cell myeloma [Unknown]
